FAERS Safety Report 14366977 (Version 1)
Quarter: 2018Q1

REPORT INFORMATION
  Report Type: Report from Study
  Country: US (occurrence: US)
  Receive Date: 20180109
  Receipt Date: 20180109
  Transmission Date: 20180509
  Serious: Yes (Hospitalization)
  Sender: FDA-Public Use
  Company Number: US-JNJFOC-20180108710

PATIENT
  Sex: Female

DRUGS (16)
  1. SYNTHROID [Concomitant]
     Active Substance: LEVOTHYROXINE SODIUM
  2. TOPROL XL [Concomitant]
     Active Substance: METOPROLOL SUCCINATE
  3. LASIX [Concomitant]
     Active Substance: FUROSEMIDE
  4. LANTUS [Concomitant]
     Active Substance: INSULIN GLARGINE
  5. ELIQUIS [Concomitant]
     Active Substance: APIXABAN
  6. CORDARONE [Concomitant]
     Active Substance: AMIODARONE HYDROCHLORIDE
  7. TUMS [Concomitant]
     Active Substance: CALCIUM CARBONATE
  8. LEUKERAN [Concomitant]
     Active Substance: CHLORAMBUCIL
  9. ZOFRAN [Concomitant]
     Active Substance: ONDANSETRON HYDROCHLORIDE
  10. TYLENOL [Concomitant]
     Active Substance: ACETAMINOPHEN
  11. TESSALON [Concomitant]
     Active Substance: BENZONATATE
  12. IMBRUVICA [Suspect]
     Active Substance: IBRUTINIB
     Indication: CHRONIC LYMPHOCYTIC LEUKAEMIA
     Route: 048
     Dates: start: 20161204
  13. LISINOPRIL. [Concomitant]
     Active Substance: LISINOPRIL
  14. MEVACOR [Concomitant]
     Active Substance: LOVASTATIN
  15. IMDUR [Concomitant]
     Active Substance: ISOSORBIDE MONONITRATE
  16. NORVASC [Concomitant]
     Active Substance: AMLODIPINE BESYLATE

REACTIONS (1)
  - Cerebrovascular accident [Unknown]
